FAERS Safety Report 16788971 (Version 1)
Quarter: 2019Q3

REPORT INFORMATION
  Report Type: Report from Study
  Country: CA (occurrence: CA)
  Receive Date: 20190910
  Receipt Date: 20190910
  Transmission Date: 20191005
  Serious: Yes (Other)
  Sender: FDA-Public Use
  Company Number: CA-BRISTOL-MYERS SQUIBB COMPANY-BMS-2019-084620

PATIENT
  Age: 77 Year
  Sex: Female

DRUGS (1)
  1. ABATACEPT [Suspect]
     Active Substance: ABATACEPT
     Indication: RHEUMATOID ARTHRITIS
     Dosage: 500 MILLIGRAM, Q4WK
     Route: 042
     Dates: start: 20111216

REACTIONS (5)
  - Pericardial effusion [Unknown]
  - Abdominal pain [Unknown]
  - Infection [Not Recovered/Not Resolved]
  - Rheumatoid arthritis [Unknown]
  - Back pain [Unknown]

NARRATIVE: CASE EVENT DATE: 20190827
